FAERS Safety Report 24935148 (Version 4)
Quarter: 2025Q4

REPORT INFORMATION
  Report Type: Report from Study
  Country: CA (occurrence: CA)
  Receive Date: 20250206
  Receipt Date: 20251209
  Transmission Date: 20260117
  Serious: Yes (Hospitalization)
  Sender: AMGEN
  Company Number: CA-Vifor (International) Inc.-VIT-2024-10388

PATIENT
  Age: 56 Year
  Sex: Male

DRUGS (2)
  1. AVACOPAN [Suspect]
     Active Substance: AVACOPAN
     Indication: Vasculitis
     Dosage: 30,MG,BID
     Route: 048
  2. AVACOPAN [Suspect]
     Active Substance: AVACOPAN
     Dosage: 20,MG,BID
     Route: 048

REACTIONS (5)
  - Osteoarthritis [Unknown]
  - Back pain [Unknown]
  - Off label use [Unknown]
  - Prescribed underdose [Unknown]
  - Off label use [Unknown]

NARRATIVE: CASE EVENT DATE: 20241106
